FAERS Safety Report 19530069 (Version 1)
Quarter: 2021Q3

REPORT INFORMATION
  Report Type: Spontaneous
  Country: GB (occurrence: GB)
  Receive Date: 20210713
  Receipt Date: 20210713
  Transmission Date: 20211014
  Serious: Yes (Other)
  Sender: FDA-Public Use
  Company Number: GB-TEVA-2021-GB-1930897

PATIENT
  Age: 48 Year
  Sex: Female

DRUGS (2)
  1. IRON [Concomitant]
     Active Substance: IRON
  2. PROGESTERONE. [Suspect]
     Active Substance: PROGESTERONE
     Indication: HAEMORRHAGE
     Route: 065

REACTIONS (2)
  - Haemorrhage [Recovering/Resolving]
  - Heavy menstrual bleeding [Not Recovered/Not Resolved]

NARRATIVE: CASE EVENT DATE: 20210607
